FAERS Safety Report 8763659 (Version 4)
Quarter: 2013Q1

REPORT INFORMATION
  Report Type: Spontaneous
  Country: FR (occurrence: FR)
  Receive Date: 20120828
  Receipt Date: 20130108
  Transmission Date: 20140127
  Serious: Yes (Hospitalization)
  Sender: FDA-Public Use
  Company Number: FR-VERTEX PHARMACEUTICAL INC.-000000000000000664

PATIENT
  Age: 59 Year
  Sex: Male

DRUGS (14)
  1. INCIVO [Suspect]
     Dosage: DOSAGE FORM: TABLET
     Route: 048
     Dates: start: 20120126, end: 20120320
  2. INCIVO [Suspect]
     Indication: CHRONIC HEPATITIS C
  3. INCIVO [Suspect]
     Indication: HEPATITIS C
  4. PEGASYS [Suspect]
     Indication: CHRONIC HEPATITIS C
     Dosage: 90 ?G, WEEKLY
     Route: 058
     Dates: start: 20120126, end: 20120320
  5. COPEGUS [Suspect]
     Indication: CHRONIC HEPATITIS C
     Dosage: DOSAGE FORM: UNKNOWN
     Route: 048
     Dates: start: 20120127, end: 20120320
  6. DAIVOBET [Concomitant]
     Indication: PRODUCT USED FOR UNKNOWN INDICATION
     Dosage: DOSAGE FORM: CREAM
     Route: 065
     Dates: end: 20120320
  7. IMOVANE [Concomitant]
     Indication: PRODUCT USED FOR UNKNOWN INDICATION
     Dosage: 7.5 MG, QD (HALF A TABLET ON THE EVENING)
     Route: 065
  8. IMOVANE [Concomitant]
     Dosage: DOSAGE FORM: TABLET, HALF A TABLET ON THE EVENING
     Route: 065
     Dates: end: 20120320
  9. TRIATEC [Concomitant]
     Indication: PRODUCT USED FOR UNKNOWN INDICATION
     Dosage: 1.25 MG, QD
     Route: 065
  10. TRIATEC [Concomitant]
     Dosage: DOSAGE FORM: UNKNOWN
     Route: 065
     Dates: end: 20120320
  11. INSULIN [Concomitant]
     Indication: PRODUCT USED FOR UNKNOWN INDICATION
     Dosage: 30 IU, BID
     Route: 065
  12. INSULIN [Concomitant]
     Dosage: DOSAGE FORM: UNKNOWN
  13. SPECIAFOLDINE [Concomitant]
     Indication: PRODUCT USED FOR UNKNOWN INDICATION
     Dosage: 5 MG, BID (2 TABLETS AT LUNCH)
     Route: 065
  14. SPECIAFOLDINE [Concomitant]
     Dosage: DOSAGE FORM: TABLET, 2 TABLETS AT LUNCH
     Route: 065
     Dates: end: 20120320

REACTIONS (4)
  - Erythrodermic psoriasis [Recovered/Resolved]
  - Skin exfoliation [Recovered/Resolved]
  - Rash pustular [Recovered/Resolved]
  - Pyrexia [Recovered/Resolved]
